FAERS Safety Report 10714741 (Version 1)
Quarter: 2015Q1

REPORT INFORMATION
  Report Type: Spontaneous
  Country: US (occurrence: US)
  Receive Date: 20150115
  Receipt Date: 20150115
  Transmission Date: 20150721
  Serious: No
  Sender: FDA-Public Use
  Company Number: US-009507513-1412USA008419

PATIENT
  Age: 25 Year
  Sex: Female
  Weight: 58.96 kg

DRUGS (1)
  1. IMPLANON [Suspect]
     Active Substance: ETONOGESTREL
     Indication: CONTRACEPTION
     Dosage: UNK
     Dates: start: 20130206

REACTIONS (5)
  - Complication of device insertion [Unknown]
  - Laceration [Unknown]
  - Implant site swelling [Unknown]
  - Purulence [Unknown]
  - Implant site erythema [Unknown]

NARRATIVE: CASE EVENT DATE: 20141217
